FAERS Safety Report 20726716 (Version 3)
Quarter: 2022Q2

REPORT INFORMATION
  Report Type: Spontaneous
  Country: US (occurrence: US)
  Receive Date: 20220419
  Receipt Date: 20220523
  Transmission Date: 20220721
  Serious: No
  Sender: FDA-Public Use
  Company Number: US-PFIZER INC-202200551844

PATIENT
  Age: 60 Year
  Sex: Female

DRUGS (1)
  1. PROTONIX [Suspect]
     Active Substance: PANTOPRAZOLE SODIUM
     Indication: Gastrooesophageal reflux disease
     Dosage: 1 DF, 1X/DAY
     Route: 048

REACTIONS (4)
  - Gastrooesophageal reflux disease [Unknown]
  - Stress [Unknown]
  - Feeling abnormal [Unknown]
  - Illness [Unknown]
